FAERS Safety Report 15263523 (Version 1)
Quarter: 2018Q3

REPORT INFORMATION
  Report Type: Spontaneous
  Country: US (occurrence: US)
  Receive Date: 20180810
  Receipt Date: 20180810
  Transmission Date: 20181010
  Serious: Yes (Other)
  Sender: FDA-Public Use
  Company Number: US-009507513-1808USA001351

PATIENT
  Age: 42 Year
  Sex: Female
  Weight: 114.1 kg

DRUGS (9)
  1. HYDROCHLOROTHIAZIDE. [Concomitant]
     Active Substance: HYDROCHLOROTHIAZIDE
     Dosage: 1 TABLET (12.5 MG) DAILY AS NEEDED
     Route: 048
     Dates: start: 20171025
  2. MECLIZINE HYDROCHLORIDE. [Concomitant]
     Active Substance: MECLIZINE HYDROCHLORIDE
     Dosage: 1 TABLET (25 MG) THREE TIMES DAILY AS NEEDED
     Route: 048
     Dates: start: 20171025
  3. PRINIVIL [Suspect]
     Active Substance: LISINOPRIL
     Dosage: 1 TABLET (5 MG) DAILY
     Route: 048
     Dates: start: 20171025
  4. ALPRAZOLAM. [Concomitant]
     Active Substance: ALPRAZOLAM
     Dosage: 1 TABLET (3 MG) DAILY, EXTENTED RELEASE 24 H
     Route: 048
     Dates: start: 20171025
  5. ESCITALOPRAM OXALATE. [Concomitant]
     Active Substance: ESCITALOPRAM OXALATE
     Dosage: 1 TABLET (10 MG) DAILY
     Route: 048
     Dates: start: 20171025
  6. VITAMIN D [Concomitant]
     Active Substance: CHOLECALCIFEROL
     Dosage: 1 CAPSULE(50000 UNIT), TWICE WEEKLY
     Route: 048
     Dates: start: 20171025
  7. DICLOFENAC SODIUM. [Concomitant]
     Active Substance: DICLOFENAC SODIUM
     Dosage: 1 TABLET(50 MG) TWICE DAILY PRN, DELAYED RELEASE
     Route: 048
     Dates: start: 20171025
  8. FLUTICASONE PROPIONATE. [Concomitant]
     Active Substance: FLUTICASONE PROPIONATE
     Dosage: USE AS DIRECTED
     Route: 045
     Dates: start: 20171025
  9. FEXOFENADINE HYDROCHLORIDE. [Concomitant]
     Active Substance: FEXOFENADINE HYDROCHLORIDE
     Dosage: 1 TABLET (180 MG) DAILY
     Route: 048
     Dates: start: 20171025

REACTIONS (5)
  - Bradycardia [Recovering/Resolving]
  - Carcinoid tumour pulmonary [Unknown]
  - Clear cell renal cell carcinoma [Unknown]
  - Sinus disorder [Unknown]
  - Hypertension [Unknown]

NARRATIVE: CASE EVENT DATE: 2017
